FAERS Safety Report 7632571-6 (Version None)
Quarter: 2011Q3

REPORT INFORMATION
  Report Type: 
  Country: None (occurrence: None)
  Receive Date: 20110725
  Receipt Date: 20101015
  Transmission Date: 20111222
  Serious: No
  Sender: FDA-Public Use
  Company Number: US-BRISTOL-MYERS SQUIBB COMPANY-15337116

PATIENT
  Age: 60 Year
  Sex: Male
  Weight: 75 kg

DRUGS (1)
  1. WARFARIN SODIUM [Suspect]
     Indication: DEEP VEIN THROMBOSIS
     Dosage: INCREASED TO 7.5MG, ALTERNATING WITH 5MG ON WEDNESDAY 13OCT2010
     Dates: start: 20101008

REACTIONS (3)
  - SKIN DISCOLOURATION [None]
  - INTERNATIONAL NORMALISED RATIO DECREASED [None]
  - PAIN [None]
